FAERS Safety Report 4525030-0 (Version None)
Quarter: 2004Q4

REPORT INFORMATION
  Report Type: 
  Country: None (occurrence: None)
  Receive Date: 20041208
  Receipt Date: 20041127
  Transmission Date: 20050328
  Serious: Yes (Other)
  Sender: FDA-Public Use
  Company Number: 2004099632

PATIENT
  Age: 6 Year
  Sex: Male

DRUGS (1)
  1. ZARONTIN SYRUP [Suspect]
     Indication: CONVULSION

REACTIONS (4)
  - CONDITION AGGRAVATED [None]
  - CONVULSION [None]
  - NAUSEA [None]
  - VOMITING [None]
